FAERS Safety Report 9674891 (Version 2)
Quarter: 2013Q4

REPORT INFORMATION
  Report Type: Report from Study
  Country: CA (occurrence: CA)
  Receive Date: 20131107
  Receipt Date: 20131107
  Transmission Date: 20140711
  Serious: Yes (Death, Hospitalization)
  Sender: FDA-Public Use
  Company Number: PHHY2013CA101997

PATIENT
  Age: 69 Year
  Sex: Male

DRUGS (2)
  1. SANDOSTATIN LAR [Suspect]
     Indication: ENTEROCUTANEOUS FISTULA
     Dosage: 20 MG EVERY 4 WEEKS
     Route: 030
     Dates: start: 20130716, end: 20131010
  2. SANDOSTATIN LAR [Suspect]
     Indication: OFF LABEL USE

REACTIONS (3)
  - Death [Fatal]
  - Fatigue [Recovering/Resolving]
  - Asthenia [Recovering/Resolving]
